FAERS Safety Report 9725468 (Version 2)
Quarter: 2013Q4

REPORT INFORMATION
  Report Type: Report from Study
  Country: FR (occurrence: FR)
  Receive Date: 20131203
  Receipt Date: 20131203
  Transmission Date: 20140711
  Serious: Yes (Hospitalization)
  Sender: FDA-Public Use
  Company Number: FR-ROCHE-1243752

PATIENT
  Age: 78 Year
  Sex: Female
  Weight: 56 kg

DRUGS (14)
  1. PEG-INTERFERON ALFA 2A [Suspect]
     Indication: HEPATITIS C
     Route: 058
     Dates: start: 20130214, end: 20130627
  2. RIBAVIRIN [Suspect]
     Indication: HEPATITIS C
     Route: 048
     Dates: start: 20130214
  3. RIBAVIRIN [Suspect]
     Route: 048
     Dates: start: 20130402
  4. RIBAVIRIN [Suspect]
     Route: 048
     Dates: start: 20130510, end: 20130718
  5. LANTUS [Concomitant]
     Indication: TYPE 1 DIABETES MELLITUS
     Dosage: 16 UNIT DIALY
     Route: 058
  6. NOVORAPID [Concomitant]
     Indication: TYPE 1 DIABETES MELLITUS
     Route: 058
  7. SEROPLEX [Concomitant]
     Indication: DEPRESSION
     Route: 048
  8. NEORECORMON [Concomitant]
     Indication: ANAEMIA
     Route: 058
     Dates: start: 20130410
  9. LANZOR [Concomitant]
     Indication: ULCER
     Route: 048
  10. KARDEGIC [Concomitant]
     Indication: HYPERTENSION
     Route: 065
  11. TAHOR [Concomitant]
     Indication: HYPERLIPIDAEMIA
     Route: 065
  12. ESIDREX [Concomitant]
     Indication: URINARY INCONTINENCE
     Route: 065
  13. GAVISCON (FRANCE) [Concomitant]
     Indication: VOMITING
     Route: 065
     Dates: start: 201303
  14. DITROPAN [Concomitant]
     Dosage: 1TABLET DAILY
     Route: 065

REACTIONS (3)
  - Type 1 diabetes mellitus [Recovered/Resolved]
  - Pyelonephritis acute [Recovered/Resolved]
  - Non-Hodgkin^s lymphoma [Recovered/Resolved]
